FAERS Safety Report 8229138-8 (Version None)
Quarter: 2012Q1

REPORT INFORMATION
  Report Type: 
  Country: None (occurrence: None)
  Receive Date: 20120322
  Receipt Date: 20120314
  Transmission Date: 20120608
  Serious: Yes (Other)
  Sender: FDA-Public Use
  Company Number: US-JNJFOC-20120308648

PATIENT
  Sex: Female
  Weight: 89.36 kg

DRUGS (3)
  1. METHOTREXATE [Suspect]
     Indication: RHEUMATOID ARTHRITIS
     Route: 065
  2. REMICADE [Suspect]
     Indication: RHEUMATOID ARTHRITIS
     Route: 042
  3. PREDNISONE TAB [Suspect]
     Indication: PRODUCT USED FOR UNKNOWN INDICATION
     Route: 065

REACTIONS (7)
  - WEIGHT INCREASED [None]
  - DEPRESSION [None]
  - ALOPECIA [None]
  - HYPERTENSION [None]
  - DRY SKIN [None]
  - RHEUMATOID ARTHRITIS [None]
  - INFECTED SKIN ULCER [None]
